FAERS Safety Report 6436053-9 (Version None)
Quarter: 2009Q4

REPORT INFORMATION
  Report Type: 
  Country: None (occurrence: None)
  Receive Date: 20091110
  Receipt Date: 20091110
  Transmission Date: 20100525
  Serious: Yes (Life-Threatening, Hospitalization, Disabling)
  Sender: FDA-Public Use
  Company Number: None

PATIENT
  Age: 7 Year
  Sex: Male
  Weight: 36 kg

DRUGS (1)
  1. PARADIGM INSULIN PUMP MEDTRONIC [Suspect]

REACTIONS (3)
  - BLOOD GLUCOSE INCREASED [None]
  - DEVICE FAILURE [None]
  - HYPOGLYCAEMIC SEIZURE [None]
